FAERS Safety Report 4521080-9 (Version None)
Quarter: 2004Q4

REPORT INFORMATION
  Report Type: 
  Country: None (occurrence: None)
  Receive Date: 20041206
  Receipt Date: 20041119
  Transmission Date: 20050328
  Serious: Yes (Hospitalization)
  Sender: FDA-Public Use
  Company Number: 2004AP05931

PATIENT
  Age: 73 Year
  Sex: Female

DRUGS (3)
  1. PULMICORT [Suspect]
     Indication: ASTHMA
     Dosage: 12 PUFF DAILY IH
     Dates: start: 19940101, end: 19970101
  2. PREDNISOLONE [Concomitant]
  3. SALBUTAMOL SULFATE [Concomitant]

REACTIONS (1)
  - OCULAR NEOPLASM [None]
